FAERS Safety Report 14125390 (Version 2)
Quarter: 2017Q4

REPORT INFORMATION
  Report Type: Report from Study
  Country: FR (occurrence: FR)
  Receive Date: 20171025
  Receipt Date: 20171107
  Transmission Date: 20180321
  Serious: Yes (Hospitalization, Congenital Anomaly, Other)
  Sender: FDA-Public Use
  Company Number: FR-VIIV HEALTHCARE LIMITED-FR2017GSK163063

PATIENT
  Sex: Male
  Weight: 2 kg

DRUGS (2)
  1. ISENTRESS [Suspect]
     Active Substance: RALTEGRAVIR POTASSIUM
     Indication: HIV INFECTION
     Dosage: UNK
     Route: 065
  2. LAMIVUDINE. [Suspect]
     Active Substance: LAMIVUDINE
     Indication: HIV INFECTION
     Dosage: UNK

REACTIONS (8)
  - Hypoxic-ischaemic encephalopathy [Unknown]
  - Oesophageal atresia [Unknown]
  - Tracheal fistula repair [Unknown]
  - Ear malformation [Unknown]
  - Hypotonia [Unknown]
  - Tracheo-oesophageal fistula [Unknown]
  - Tracheal deviation [Unknown]
  - Foetal exposure during pregnancy [Unknown]
